FAERS Safety Report 4581528-0 (Version None)
Quarter: 2005Q1

REPORT INFORMATION
  Report Type: 
  Country: None (occurrence: None)
  Receive Date: 20050214
  Receipt Date: 20041109
  Transmission Date: 20050727
  Serious: No
  Sender: FDA-Public Use
  Company Number: US-GLAXOSMITHKLINE-A0533266A

PATIENT
  Age: 56 Year
  Sex: Female

DRUGS (4)
  1. LAMICTAL [Suspect]
     Indication: BIPOLAR DISORDER
     Dosage: 200MG PER DAY
     Route: 048
     Dates: end: 20041108
  2. LEXAPRO [Concomitant]
  3. ATENOLOL [Concomitant]
  4. ZOCOR [Concomitant]

REACTIONS (5)
  - CHEILITIS [None]
  - EYE PRURITUS [None]
  - MIGRAINE [None]
  - PRURITUS [None]
  - RASH [None]
